FAERS Safety Report 12880520 (Version 1)
Quarter: 2016Q4

REPORT INFORMATION
  Report Type: Spontaneous
  Country: US (occurrence: US)
  Receive Date: 20161024
  Receipt Date: 20161024
  Transmission Date: 20170207
  Serious: Yes (Hospitalization, Other)
  Sender: FDA-Public Use
  Company Number: None

PATIENT
  Age: 73 Year
  Sex: Female
  Weight: 64 kg

DRUGS (1)
  1. NALOXONE [Suspect]
     Active Substance: NALOXONE
     Route: 042
     Dates: start: 20160131, end: 20160131

REACTIONS (2)
  - Pneumonitis [None]
  - Pulmonary oedema [None]

NARRATIVE: CASE EVENT DATE: 20160131
